FAERS Safety Report 9387534 (Version 3)
Quarter: 2013Q3

REPORT INFORMATION
  Report Type: Spontaneous
  Country: JP (occurrence: JP)
  Receive Date: 20130708
  Receipt Date: 20130802
  Transmission Date: 20140515
  Serious: Yes (Other)
  Sender: FDA-Public Use
  Company Number: JP-PFIZER INC-2013200101

PATIENT
  Age: 88 Year
  Sex: Female
  Weight: 40 kg

DRUGS (4)
  1. CELECOX [Suspect]
     Indication: TENOSYNOVITIS
     Dosage: 100 MG, 2X/DAY
     Route: 048
     Dates: start: 20130608, end: 20130621
  2. HERBESSER R [Concomitant]
     Indication: TACHYCARDIA
     Dosage: UNK
  3. EPADEL [Concomitant]
     Indication: HYPERLIPIDAEMIA
     Dosage: UNK
     Dates: start: 20080216
  4. LOXONIN [Concomitant]
     Indication: TENOSYNOVITIS
     Dosage: UNK
     Dates: start: 20130509, end: 20130608

REACTIONS (2)
  - Urinary retention [Recovered/Resolved]
  - Cystitis [Recovered/Resolved]
